FAERS Safety Report 4459997-6 (Version None)
Quarter: 2004Q3

REPORT INFORMATION
  Report Type: 
  Country: None (occurrence: None)
  Receive Date: 20040928
  Receipt Date: 20030922
  Transmission Date: 20050211
  Serious: No
  Sender: FDA-Public Use
  Company Number: US-GLAXOSMITHKLINE-A0427226A

PATIENT
  Age: 67 Year
  Sex: Female

DRUGS (2)
  1. SEREVENT [Suspect]
     Indication: ASTHMA
     Route: 055
  2. FLOVENT [Suspect]
     Indication: ASTHMA
     Dosage: 2PUFF TWICE PER DAY
     Route: 055

REACTIONS (5)
  - CHOKING SENSATION [None]
  - DRUG INEFFECTIVE [None]
  - DYSPNOEA [None]
  - MIDDLE INSOMNIA [None]
  - PRODUCTIVE COUGH [None]
